FAERS Safety Report 5490399-X (Version None)
Quarter: 2007Q4

REPORT INFORMATION
  Report Type: 
  Country: None (occurrence: None)
  Receive Date: 20071019
  Receipt Date: 20071009
  Transmission Date: 20080405
  Serious: Yes (Hospitalization)
  Sender: FDA-Public Use
  Company Number: PHHO2007AT16632

PATIENT
  Age: 27 Year
  Sex: Male

DRUGS (1)
  1. MYCOPHENOLIC ACID [Suspect]
     Indication: RENAL TRANSPLANT
     Dosage: 1440 MG/DAY
     Route: 048
     Dates: start: 20070827

REACTIONS (2)
  - URINARY ANASTOMOTIC LEAK [None]
  - URINARY TRACT OPERATION [None]
